FAERS Safety Report 10945165 (Version 1)
Quarter: 2015Q1

REPORT INFORMATION
  Report Type: Spontaneous
  Country: US (occurrence: None)
  Receive Date: 20150212
  Receipt Date: 20150212
  Transmission Date: 20150721
  Serious: Yes (Hospitalization)
  Sender: FDA-Public Use
  Company Number: TPA2011A01111

PATIENT
  Age: 25 Year
  Sex: Male
  Weight: 111.13 kg

DRUGS (2)
  1. ULORIC [Suspect]
     Active Substance: FEBUXOSTAT
     Indication: GOUT
     Route: 048
     Dates: end: 19970315
  2. COLCHICINE (COLCHICINE) [Suspect]
     Active Substance: COLCHICINE

REACTIONS (2)
  - Gout [None]
  - Urticaria [None]

NARRATIVE: CASE EVENT DATE: 1997
